FAERS Safety Report 5517167-4 (Version None)
Quarter: 2007Q4

REPORT INFORMATION
  Report Type: 
  Country: None (occurrence: None)
  Receive Date: 20071114
  Receipt Date: 20071102
  Transmission Date: 20080405
  Serious: Yes (Other)
  Sender: FDA-Public Use
  Company Number: JP-ROCHE-525634

PATIENT
  Age: 51 Year
  Sex: Male
  Weight: 77 kg

DRUGS (14)
  1. COPEGUS [Suspect]
     Route: 048
     Dates: start: 20070712, end: 20070921
  2. PEGASYS [Suspect]
     Route: 058
     Dates: start: 20070712, end: 20070726
  3. PEGASYS [Suspect]
     Dosage: DOSE INCREASED
     Route: 058
     Dates: start: 20070802, end: 20070809
  4. PEGASYS [Suspect]
     Route: 058
     Dates: start: 20070816, end: 20070816
  5. PEGASYS [Suspect]
     Route: 058
     Dates: start: 20070823, end: 20070823
  6. PEGASYS [Suspect]
     Route: 058
     Dates: start: 20070830, end: 20070914
  7. PEGASYS [Suspect]
     Route: 058
     Dates: start: 20070920, end: 20070920
  8. OLMETEC [Concomitant]
     Route: 048
     Dates: start: 20070622, end: 20070725
  9. LOXONIN [Concomitant]
     Route: 048
     Dates: start: 20070712, end: 20070719
  10. MICARDIS [Concomitant]
     Route: 048
     Dates: start: 20070726
  11. ATELEC [Concomitant]
     Route: 048
     Dates: start: 20070816
  12. STOGAR [Concomitant]
     Route: 048
     Dates: start: 20070816
  13. ZOLPIDEM [Concomitant]
     Route: 048
     Dates: start: 20070816
  14. ZYRTEC [Concomitant]
     Route: 048
     Dates: start: 20070816

REACTIONS (1)
  - HEPATIC ENCEPHALOPATHY [None]
